FAERS Safety Report 4394952-6 (Version None)
Quarter: 2004Q3

REPORT INFORMATION
  Report Type: 
  Country: None (occurrence: None)
  Receive Date: 20040712
  Receipt Date: 20040628
  Transmission Date: 20050211
  Serious: Yes (Other)
  Sender: FDA-Public Use
  Company Number: NO-GLAXOSMITHKLINE-B0337850A

PATIENT
  Age: 39 Year
  Sex: Female

DRUGS (1)
  1. ZYBAN [Suspect]
     Route: 048

REACTIONS (5)
  - ERYTHEMA MULTIFORME [None]
  - EXANTHEM [None]
  - PERIORBITAL OEDEMA [None]
  - RASH VESICULAR [None]
  - URTICARIA GENERALISED [None]
